FAERS Safety Report 5154058-5 (Version None)
Quarter: 2006Q4

REPORT INFORMATION
  Report Type: 
  Country: None (occurrence: None)
  Receive Date: 20061116
  Receipt Date: 20061116
  Transmission Date: 20070319
  Serious: Yes (Other)
  Sender: FDA-Public Use
  Company Number: None

PATIENT
  Age: 78 Year
  Sex: Female

DRUGS (7)
  1. BACTRIM DS [Suspect]
     Indication: URINARY TRACT INFECTION
     Dosage: BACTRIM DS 1 TAB BID PO
     Route: 048
     Dates: start: 20050503, end: 20050517
  2. ARICEPT [Concomitant]
  3. LEXAPRO [Concomitant]
  4. RIPERIDAL [Concomitant]
  5. VALPROIC ACID [Concomitant]
  6. NAMENDA [Concomitant]
  7. AMBIEN [Concomitant]

REACTIONS (1)
  - PANCYTOPENIA [None]
